FAERS Safety Report 10700093 (Version 1)
Quarter: 2015Q1

REPORT INFORMATION
  Report Type: Spontaneous
  Country: US (occurrence: US)
  Receive Date: 20150109
  Receipt Date: 20150109
  Transmission Date: 20150721
  Serious: Yes (Hospitalization)
  Sender: FDA-Public Use
  Company Number: US-BAYER-2015-002825

PATIENT
  Age: 0 Year

DRUGS (2)
  1. HYDROCODONE [Concomitant]
     Active Substance: HYDROCODONE
     Dosage: UNK
     Dates: start: 200906
  2. MIRENA [Suspect]
     Active Substance: LEVONORGESTREL
     Dosage: UNK
     Route: 064
     Dates: start: 20090309, end: 20091013

REACTIONS (4)
  - Premature baby [None]
  - Feeding disorder neonatal [None]
  - Respiratory disorder neonatal [None]
  - Foetal exposure during pregnancy [None]

NARRATIVE: CASE EVENT DATE: 200910
